FAERS Safety Report 7655415-5 (Version None)
Quarter: 2011Q3

REPORT INFORMATION
  Report Type: 
  Country: None (occurrence: None)
  Receive Date: 20110729
  Receipt Date: 20110726
  Transmission Date: 20111222
  Serious: Yes (Death)
  Sender: FDA-Public Use
  Company Number: AE-711-237

PATIENT
  Age: 87 Year
  Sex: Female

DRUGS (3)
  1. FENTANYL [Concomitant]
  2. LIDODERM [Suspect]
     Dates: start: 20110410
  3. BUTRANS [Concomitant]

REACTIONS (1)
  - DEATH [None]
